FAERS Safety Report 13010326 (Version 3)
Quarter: 2018Q1

REPORT INFORMATION
  Report Type: Report from Study
  Country: DE (occurrence: DE)
  Receive Date: 20161208
  Receipt Date: 20180220
  Transmission Date: 20180508
  Serious: Yes (Hospitalization)
  Sender: FDA-Public Use
  Company Number: DE-CELGENEUS-DEU-2016117932

PATIENT
  Age: 73 Year
  Sex: Male
  Weight: 65 kg

DRUGS (6)
  1. ABRAXANE [Suspect]
     Active Substance: PACLITAXEL
     Indication: PANCREATIC CARCINOMA
     Dosage: 125MG/M2
     Route: 041
     Dates: start: 20160607
  2. RAMIPRIL. [Concomitant]
     Active Substance: RAMIPRIL
     Indication: ELECTROCARDIOGRAM ABNORMAL
     Dosage: 10MG
     Route: 048
  3. AMLODIPINE [Concomitant]
     Active Substance: AMLODIPINE BESYLATE
     Indication: ELECTROCARDIOGRAM ABNORMAL
     Dosage: 10MG
     Route: 048
  4. GEMCITABINE [Suspect]
     Active Substance: GEMCITABINE\GEMCITABINE HYDROCHLORIDE
     Indication: PANCREATIC CARCINOMA
     Dosage: 1000MG/M2
     Route: 041
     Dates: start: 20160607
  5. METOPROLOL. [Concomitant]
     Active Substance: METOPROLOL
     Indication: ELECTROCARDIOGRAM ABNORMAL
     Dosage: 190MG
     Route: 048
  6. PANTOPRAZOLE [Concomitant]
     Active Substance: PANTOPRAZOLE
     Indication: GASTRITIS
     Dosage: 40MG
     Route: 048

REACTIONS (2)
  - Pleural effusion [Recovered/Resolved]
  - Infection [Recovered/Resolved]

NARRATIVE: CASE EVENT DATE: 20161123
